FAERS Safety Report 4271470-7 (Version None)
Quarter: 2004Q1

REPORT INFORMATION
  Report Type: 
  Country: None (occurrence: None)
  Receive Date: 20040114
  Receipt Date: 20040114
  Transmission Date: 20041129
  Serious: Yes (Hospitalization)
  Sender: FDA-Public Use
  Company Number: None

PATIENT
  Sex: Female
  Weight: 75.2971 kg

DRUGS (7)
  1. GEMCITABINE 100MG/ML LILLY ONCOLOGY [Suspect]
     Indication: PANCREATIC CARCINOMA METASTATIC
     Dosage: 1000 MG/M2 DAY 1/15 INTRAVENOUS
     Route: 042
     Dates: start: 20030529, end: 20040109
  2. CISPLATIN [Suspect]
     Indication: PANCREATIC CARCINOMA METASTATIC
     Dosage: 20 MG/M2 DAY 1/15 INTRAVENOUS
     Route: 042
     Dates: start: 20030529, end: 20040109
  3. AMBIEN [Concomitant]
  4. PROCRIT [Concomitant]
  5. COMPAZINE [Concomitant]
  6. KYTRIL [Concomitant]
  7. ATIVAN [Concomitant]

REACTIONS (3)
  - ACCIDENTAL OVERDOSE [None]
  - LETHARGY [None]
  - MENTAL STATUS CHANGES [None]
